FAERS Safety Report 10397709 (Version 1)
Quarter: 2014Q3

REPORT INFORMATION
  Report Type: Spontaneous
  Country: US (occurrence: US)
  Receive Date: 20140821
  Receipt Date: 20140821
  Transmission Date: 20150326
  Serious: No
  Sender: FDA-Public Use
  Company Number: US-TEVA-480386USA

PATIENT
  Sex: Female

DRUGS (1)
  1. KARIVA [Suspect]
     Active Substance: DESOGESTREL\ETHINYL ESTRADIOL
     Indication: CONTRACEPTION
     Dosage: TAKEN FOR A FEW YEARS

REACTIONS (1)
  - Vulvovaginal mycotic infection [Not Recovered/Not Resolved]
